FAERS Safety Report 6072016-3 (Version None)
Quarter: 2009Q1

REPORT INFORMATION
  Report Type: 
  Country: None (occurrence: None)
  Receive Date: 20090205
  Receipt Date: 20090129
  Transmission Date: 20090719
  Serious: Yes (Hospitalization)
  Sender: FDA-Public Use
  Company Number: MEDI-0007779

PATIENT
  Age: 3 Month
  Sex: Male
  Weight: 3.38 kg

DRUGS (9)
  1. SYNAGIS [Suspect]
     Indication: PROPHYLAXIS
     Dates: start: 20081118, end: 20081218
  2. SYNAGIS [Suspect]
     Indication: PROPHYLAXIS
     Dates: start: 20081118
  3. SYNAGIS [Suspect]
     Indication: PROPHYLAXIS
     Dates: start: 20090112
  4. POLY-VI-SOL (ERGOCALCIFEROL, ASCORBIC ACID, THIAMINE, RETINOL, RIBOFLA [Concomitant]
  5. ALDACTAZIDE (SPIRONOLACTONE , HYDROCHLOROTHIAZIDE) [Concomitant]
  6. RANITIDINE [Concomitant]
  7. SODIUM CHLORIDE 0.9% [Concomitant]
  8. MYLICON (SIMETICONE) [Concomitant]
  9. OXYGEN [Concomitant]

REACTIONS (8)
  - APNOEA [None]
  - CONVULSION [None]
  - DIARRHOEA [None]
  - ENTEROBACTER INFECTION [None]
  - HYPOGAMMAGLOBULINAEMIA [None]
  - NOSOCOMIAL INFECTION [None]
  - PNEUMONIA [None]
  - RESPIRATORY SYNCYTIAL VIRUS INFECTION [None]
